FAERS Safety Report 18217681 (Version 1)
Quarter: 2020Q3

REPORT INFORMATION
  Report Type: Spontaneous
  Country: US (occurrence: US)
  Receive Date: 20200901
  Receipt Date: 20200901
  Transmission Date: 20201103
  Serious: Yes (Other)
  Sender: FDA-Public Use
  Company Number: US-MYLANLABS-2020M1075503

PATIENT
  Sex: Male

DRUGS (8)
  1. CYMBALTA [Suspect]
     Active Substance: DULOXETINE HYDROCHLORIDE
     Indication: PRODUCT USED FOR UNKNOWN INDICATION
     Dosage: 120 MILLIGRAM
  2. LORAZEPAM. [Suspect]
     Active Substance: LORAZEPAM
     Indication: SLEEP DISORDER
     Dosage: 5 MILLIGRAM
  3. CYMBALTA [Suspect]
     Active Substance: DULOXETINE HYDROCHLORIDE
     Dosage: UNK
  4. DOXEPIN [Suspect]
     Active Substance: DOXEPIN
     Dosage: 3 MILLIGRAM
  5. DOXEPIN [Suspect]
     Active Substance: DOXEPIN
     Indication: MID-LIFE CRISIS
     Dosage: 150 MILLIGRAM
  6. LORAZEPAM. [Suspect]
     Active Substance: LORAZEPAM
     Dosage: 1/4 PILL
  7. VALIUM [Suspect]
     Active Substance: DIAZEPAM
     Indication: PRODUCT USED FOR UNKNOWN INDICATION
     Dosage: 2 MILLIGRAM
  8. LORAZEPAM. [Suspect]
     Active Substance: LORAZEPAM
     Dosage: HALF IN MORNING AND WHOLE TABLET AT NIGHT

REACTIONS (6)
  - Sleep disorder [Unknown]
  - Drug ineffective [Unknown]
  - Somnolence [Unknown]
  - Sleep deficit [Unknown]
  - Plasma cell myeloma [Unknown]
  - Cognitive disorder [Unknown]
